FAERS Safety Report 25740282 (Version 1)
Quarter: 2025Q3

REPORT INFORMATION
  Report Type: Spontaneous
  Country: US (occurrence: US)
  Receive Date: 20250829
  Receipt Date: 20250829
  Transmission Date: 20251020
  Serious: No
  Sender: MERCK SHARP & DOHME LLC
  Company Number: US-PFIZER INC-PV202400094343

PATIENT
  Age: 77 Year
  Sex: Female

DRUGS (3)
  1. TUCATINIB [Suspect]
     Active Substance: TUCATINIB
     Indication: Breast cancer metastatic
     Dosage: DOSE DESCRIPTION : 100 MG, 2X/DAY?DAILY DOSE : 200 MILLIGRAM?CONCENTRATION: 50 MILLIGRAM
  2. TUCATINIB [Suspect]
     Active Substance: TUCATINIB
     Indication: Breast cancer metastatic
     Dosage: DOSE DESCRIPTION : 250 MG, DAILY (100 MG IN THE MORNING, 150 MG IN THE EVENING)?DAILY DOSE : 250 ...
  3. TUCATINIB [Suspect]
     Active Substance: TUCATINIB
     Indication: Breast cancer metastatic
     Dosage: DOSE DESCRIPTION : 250 MG, DAILY (TWO TABLETS IN THE MORNING AND THREE TABLETS IN THE EVENING)?DA...

REACTIONS (4)
  - Decreased appetite [Unknown]
  - Off label use [Unknown]
  - Fatigue [Unknown]
  - Constipation [Unknown]
